FAERS Safety Report 25837862 (Version 2)
Quarter: 2025Q4

REPORT INFORMATION
  Report Type: Report from Study
  Country: EU (occurrence: None)
  Receive Date: 20250923
  Receipt Date: 20251125
  Transmission Date: 20260118
  Serious: Yes (Hospitalization, Other)
  Sender: UCB
  Company Number: EU-UCBSA-2025041266

PATIENT
  Age: 73 Year

DRUGS (11)
  1. ROZANOLIXIZUMAB [Suspect]
     Active Substance: ROZANOLIXIZUMAB
     Indication: Myasthenia gravis
     Dosage: 2 MILLILITER
  2. ROZANOLIXIZUMAB [Suspect]
     Active Substance: ROZANOLIXIZUMAB
     Dosage: 1 ADMINISTRATION, WEEKLY (QW)
  3. MYFENAX [Suspect]
     Active Substance: MYCOPHENOLATE MOFETIL
     Indication: Product used for unknown indication
     Dosage: UNK
  4. MESTINON [Concomitant]
     Active Substance: PYRIDOSTIGMINE BROMIDE
     Indication: Muscular weakness
     Dosage: UNK
  5. adelcort [Concomitant]
     Indication: Muscular weakness
     Dosage: 5 MILLIGRAM
  6. AZATHIOPRINE [Concomitant]
     Active Substance: AZATHIOPRINE
     Indication: Product used for unknown indication
     Dosage: UNK
  7. CORTISONE [Concomitant]
     Active Substance: CORTISONE
     Indication: Myasthenia gravis
     Dosage: 5 MILLIGRAM
  8. CORTISONE [Concomitant]
     Active Substance: CORTISONE
     Indication: Bone marrow transplant
     Dosage: 4 TABLETS ONE DAY AND 2 THE NEXT)
  9. Taf [Concomitant]
     Indication: Thyroid disorder
  10. LEVOTHYROXINE [Concomitant]
     Active Substance: LEVOTHYROXINE
     Indication: Product used for unknown indication
     Dosage: 25 MILLIGRAM
  11. PENRAZOL [OMEPRAZOLE] [Concomitant]
     Indication: Prophylaxis
     Dosage: UNK

REACTIONS (8)
  - Thrombosis [Not Recovered/Not Resolved]
  - Joint swelling [Not Recovered/Not Resolved]
  - Chest pain [Not Recovered/Not Resolved]
  - Gait disturbance [Not Recovered/Not Resolved]
  - Abdominal pain [Recovered/Resolved]
  - Diarrhoea [Recovered/Resolved]
  - Drug hypersensitivity [Unknown]
  - Product dose omission issue [Unknown]
